FAERS Safety Report 4761520-3 (Version None)
Quarter: 2005Q3

REPORT INFORMATION
  Report Type: 
  Country: None (occurrence: None)
  Receive Date: 20050906
  Receipt Date: 20050824
  Transmission Date: 20060218
  Serious: Yes (Hospitalization, Other)
  Sender: FDA-Public Use
  Company Number: 2005GB01656

PATIENT
  Age: 68 Year
  Sex: Male
  Weight: 85 kg

DRUGS (5)
  1. SEROQUEL [Suspect]
     Indication: BIPOLAR I DISORDER
     Dosage: 100MG OR 150MG TWICE A DAY
     Route: 048
     Dates: start: 20050401
  2. SEROQUEL [Suspect]
     Route: 048
     Dates: start: 20050804, end: 20050804
  3. PARACETAMOL [Suspect]
     Route: 048
     Dates: start: 20050804, end: 20050804
  4. PAROXETINE HCL [Suspect]
     Route: 048
     Dates: start: 20050804, end: 20050804
  5. VODKA [Suspect]
     Dosage: A BOTTLE OF VODKA
     Route: 048
     Dates: start: 20050804, end: 20050804

REACTIONS (2)
  - HYPERKALAEMIA [None]
  - OVERDOSE [None]
